FAERS Safety Report 16160624 (Version 7)
Quarter: 2021Q1

REPORT INFORMATION
  Report Type: Spontaneous
  Country: JP (occurrence: JP)
  Receive Date: 20190405
  Receipt Date: 20210112
  Transmission Date: 20210419
  Serious: Yes (Hospitalization, Other)
  Sender: FDA-Public Use
  Company Number: JP-BRISTOL-MYERS SQUIBB COMPANY-BMS-2019-029422

PATIENT
  Age: 82 Year
  Sex: Male
  Weight: 71 kg

DRUGS (4)
  1. OPDIVO [Suspect]
     Active Substance: NIVOLUMAB
     Indication: METASTASES TO LUNG
  2. OPDIVO [Suspect]
     Active Substance: NIVOLUMAB
     Indication: RENAL CELL CARCINOMA
     Dosage: 240 MILLIGRAM, ONE TIME DOSE
     Route: 041
     Dates: start: 20190220, end: 20190220
  3. YERVOY [Suspect]
     Active Substance: IPILIMUMAB
     Indication: RENAL CELL CARCINOMA
     Dosage: 1 MILLIGRAM/KILOGRAM, ONE TIME DOSE
     Route: 041
     Dates: start: 20190220, end: 20190220
  4. YERVOY [Suspect]
     Active Substance: IPILIMUMAB
     Indication: METASTASES TO LUNG

REACTIONS (11)
  - Hypothyroidism [Unknown]
  - Renal disorder [Unknown]
  - Blood creatine phosphokinase increased [Unknown]
  - Lipase increased [Unknown]
  - Myocarditis [Recovered/Resolved]
  - Atrioventricular block complete [Recovered/Resolved]
  - Liver disorder [Recovered/Resolved]
  - Dyspnoea [Unknown]
  - Alanine aminotransferase increased [Unknown]
  - Rash [Not Recovered/Not Resolved]
  - Malaise [Unknown]

NARRATIVE: CASE EVENT DATE: 20190222
